FAERS Safety Report 12870939 (Version 2)
Quarter: 2016Q4

REPORT INFORMATION
  Report Type: Report from Study
  Country: US (occurrence: US)
  Receive Date: 20161020
  Receipt Date: 20161111
  Transmission Date: 20170207
  Serious: Yes (Other)
  Sender: FDA-Public Use
  Company Number: US-AMGEN-USASL2016138179

PATIENT
  Age: 64 Year
  Sex: Female
  Weight: 100.7 kg

DRUGS (20)
  1. REPATHA [Suspect]
     Active Substance: EVOLOCUMAB
     Indication: HYPERLIPIDAEMIA
  2. CALCIUM [Concomitant]
     Active Substance: CALCIUM
     Dosage: 600 MG, QWK
     Route: 048
  3. RANITIDINE. [Concomitant]
     Active Substance: RANITIDINE
     Dosage: 150 MG, QD
     Route: 048
  4. VITAMIN D [Concomitant]
     Active Substance: CHOLECALCIFEROL
     Dosage: 400 UNIT, UNK
     Route: 048
  5. FLAX [Concomitant]
     Dosage: 10001 MG, UNK
     Route: 048
  6. WELCHOL [Concomitant]
     Active Substance: COLESEVELAM HYDROCHLORIDE
     Dosage: 625 MG, 2 TABLETS DAILY
     Route: 048
  7. ZMA [Concomitant]
     Dosage: 10 MG, EMPTY STOMUCH 2 CAPSULE, QD
     Route: 048
  8. NITROGLYCERIN. [Concomitant]
     Active Substance: NITROGLYCERIN
     Dosage: 0.4 MG, UNK
     Route: 060
  9. LIPITOR [Concomitant]
     Active Substance: ATORVASTATIN CALCIUM
     Dosage: 10 MG, QD
  10. BRILINTA [Concomitant]
     Active Substance: TICAGRELOR
     Dosage: 90 MG, BID
     Route: 048
  11. COREG [Concomitant]
     Active Substance: CARVEDILOL
     Dosage: 3.125 MG, BID
     Route: 048
  12. FLAXSEED [Concomitant]
     Active Substance: FLAX SEED
     Dosage: 1000 MG, UNK
  13. REPATHA [Suspect]
     Active Substance: EVOLOCUMAB
     Indication: LOW DENSITY LIPOPROTEIN INCREASED
     Dosage: 140 MG/ML, Q2WK
     Route: 058
     Dates: start: 20160921, end: 20161006
  14. LISINOPRIL. [Concomitant]
     Active Substance: LISINOPRIL
     Dosage: 10 MG, QD
     Route: 048
  15. PLAVIX [Concomitant]
     Active Substance: CLOPIDOGREL BISULFATE
     Dosage: 75 MG, QD
  16. VITAMIN B COMPLEX WITH C [Concomitant]
     Active Substance: ASCORBIC ACID\CALCIUM PANTOTHENATE\CYANOCOBALAMIN\NIACINAMIDE\PYRIDOXINE HYDROCHLORIDE\RIBOFLAVIN\THIAMINE MONONITRATE
     Route: 048
  17. PERCOCET [Concomitant]
     Active Substance: ACETAMINOPHEN\OXYCODONE HYDROCHLORIDE
     Dosage: 10-325 MG
  18. ASPIRIN. [Concomitant]
     Active Substance: ASPIRIN
     Dosage: 81 MG, QD
     Route: 048
  19. SPIRONOLACTONE. [Concomitant]
     Active Substance: SPIRONOLACTONE
     Dosage: 100 MG, DAILY
     Route: 048
  20. VITAMIN E [Concomitant]
     Active Substance: .ALPHA.-TOCOPHEROL
     Dosage: 100 UNIT, QD

REACTIONS (9)
  - Dizziness [Unknown]
  - Angina pectoris [Unknown]
  - Feeling jittery [Unknown]
  - Feeling abnormal [Unknown]
  - Palpitations [Unknown]
  - Dyspnoea exertional [Recovered/Resolved]
  - Cardiac flutter [Unknown]
  - Asthenia [Recovered/Resolved]
  - Fatigue [Recovering/Resolving]

NARRATIVE: CASE EVENT DATE: 201609
